FAERS Safety Report 15342159 (Version 2)
Quarter: 2018Q3

REPORT INFORMATION
  Report Type: Spontaneous
  Country: US (occurrence: US)
  Receive Date: 20180902
  Receipt Date: 20180924
  Transmission Date: 20181010
  Serious: No
  Sender: FDA-Public Use
  Company Number: US-JNJFOC-20180736664

PATIENT
  Age: 43 Year
  Sex: Female
  Weight: 58.97 kg

DRUGS (4)
  1. ORTHO TRI CYCLEN LO [Suspect]
     Active Substance: ETHINYL ESTRADIOL\NORGESTIMATE
     Indication: HORMONE LEVEL ABNORMAL
     Route: 048
  2. ORTHO TRI CYCLEN LO [Suspect]
     Active Substance: ETHINYL ESTRADIOL\NORGESTIMATE
     Indication: CONTRACEPTION
     Route: 048
  3. ACCUTANE [Concomitant]
     Active Substance: ISOTRETINOIN
     Route: 065
  4. ORTHO TRI CYCLEN LO [Suspect]
     Active Substance: ETHINYL ESTRADIOL\NORGESTIMATE
     Indication: ACNE
     Route: 048

REACTIONS (5)
  - Off label use [Unknown]
  - Product packaging issue [Unknown]
  - Product use in unapproved indication [Unknown]
  - Inappropriate schedule of drug administration [Unknown]
  - Wrong drug administered [Unknown]

NARRATIVE: CASE EVENT DATE: 201807
